FAERS Safety Report 4725054-4 (Version None)
Quarter: 2005Q3

REPORT INFORMATION
  Report Type: 
  Country: None (occurrence: None)
  Receive Date: 20050721
  Receipt Date: 20050708
  Transmission Date: 20060218
  Serious: Yes (Hospitalization)
  Sender: FDA-Public Use
  Company Number: FABR-11164

PATIENT
  Age: 37 Year
  Sex: Male
  Weight: 70 kg

DRUGS (16)
  1. FABRAZYME [Suspect]
     Indication: FABRY'S DISEASE
     Dosage: 70 MG Q2WKS IV
     Route: 042
     Dates: start: 20030527
  2. ASPIRIN [Concomitant]
  3. FOLIC ACID [Concomitant]
  4. PREVACID [Concomitant]
  5. NEURONTIN [Concomitant]
  6. ADVAIR DISKUS 100/50 [Concomitant]
  7. FOSAMAX [Concomitant]
  8. CALCIUM/VITAMIN D [Concomitant]
  9. CELLCEPT [Concomitant]
  10. SENOKOT [Concomitant]
  11. BACTRIM DS [Concomitant]
  12. PROGRAF [Concomitant]
  13. TYLENOL (CAPLET) [Concomitant]
  14. MAGNESIUM OXIDE [Concomitant]
  15. MORPHINE SULFATE [Concomitant]
  16. RENAL MULTIVITAMIN [Concomitant]

REACTIONS (2)
  - ASEPTIC NECROSIS BONE [None]
  - OSTEOARTHRITIS [None]
